FAERS Safety Report 18581885 (Version 1)
Quarter: 2020Q4

REPORT INFORMATION
  Report Type: Other
  Country: FR (occurrence: FR)
  Receive Date: 20201205
  Receipt Date: 20201205
  Transmission Date: 20210114
  Serious: Yes (Hospitalization)
  Sender: FDA-Public Use
  Company Number: FR-CADILA HEALTHCARE LIMITED-FR-ZYDUS-058809

PATIENT

DRUGS (5)
  1. SERESTA [Suspect]
     Active Substance: OXAZEPAM
     Indication: POISONING DELIBERATE
     Dosage: POSOLOGIE NON CONNUE
     Route: 048
     Dates: start: 20200928, end: 20200928
  2. BISOPROLOL [Suspect]
     Active Substance: BISOPROLOL
     Indication: POISONING DELIBERATE
     Dosage: POSOLOGIE NON CONNUE
     Route: 048
     Dates: start: 20200928, end: 20200928
  3. TRAMADOL. [Suspect]
     Active Substance: TRAMADOL
     Indication: POISONING DELIBERATE
     Dosage: POSOLOGIE NON CONNUE
     Route: 048
     Dates: start: 20200928, end: 20200928
  4. LERCANIDIPINE [Suspect]
     Active Substance: LERCANIDIPINE
     Indication: POISONING DELIBERATE
     Dosage: POSOLOGIE NON CONNUE
     Route: 048
     Dates: start: 20200928, end: 20200928
  5. PARACETAMOL [Suspect]
     Active Substance: ACETAMINOPHEN
     Indication: POISONING DELIBERATE
     Dosage: 20 GRAM
     Route: 048
     Dates: start: 20200928, end: 20200928

REACTIONS (1)
  - Acute hepatic failure [Recovering/Resolving]

NARRATIVE: CASE EVENT DATE: 20200929
